FAERS Safety Report 7018227-1 (Version None)
Quarter: 2010Q3

REPORT INFORMATION
  Report Type: 
  Country: None (occurrence: None)
  Receive Date: 20100928
  Receipt Date: 20100919
  Transmission Date: 20110219
  Serious: Yes (Other)
  Sender: FDA-Public Use
  Company Number: US-JNJFOC-20100907406

PATIENT
  Age: 17 Year
  Sex: Male

DRUGS (4)
  1. CONCERTA [Suspect]
     Indication: PETIT MAL EPILEPSY
     Route: 048
  2. CONCERTA [Suspect]
     Route: 048
  3. CONCERTA [Suspect]
     Route: 048
  4. CLONIDINE [Suspect]
     Indication: PRODUCT USED FOR UNKNOWN INDICATION
     Route: 065

REACTIONS (7)
  - ATTENTION DEFICIT/HYPERACTIVITY DISORDER [None]
  - DEPRESSION [None]
  - IMPULSIVE BEHAVIOUR [None]
  - INSOMNIA [None]
  - OFF LABEL USE [None]
  - OVERDOSE [None]
  - PETIT MAL EPILEPSY [None]
